FAERS Safety Report 9753052 (Version 1)
Quarter: 2013Q4

REPORT INFORMATION
  Report Type: Spontaneous
  Country: US (occurrence: US)
  Receive Date: 20131213
  Receipt Date: 20131213
  Transmission Date: 20140711
  Serious: Yes (Hospitalization)
  Sender: FDA-Public Use
  Company Number: US-BAYER-2013-152627

PATIENT
  Age: 37 Year
  Sex: Female
  Weight: 127.89 kg

DRUGS (8)
  1. YAZ [Suspect]
  2. ELMIRON [Concomitant]
     Dosage: 100 MG, TWO TABLETS TWICE A DAY
  3. DEPAKOTE [Concomitant]
     Dosage: 500 MG, THREE TABLETS AT BEDTIME
  4. LEXAPRO [Concomitant]
     Dosage: 5 MG, UNK
  5. LORTAB [Concomitant]
     Dosage: THREE TIMES A DAY AS NEEDED
  6. KLONOPIN [Concomitant]
     Indication: ANXIETY
     Dosage: 0.5 MG, TWICE A DAY AS NEEDED
  7. PREVACID [Concomitant]
     Dosage: 30 MG, DAILY
  8. OMEPRAZOLE [Concomitant]

REACTIONS (1)
  - Deep vein thrombosis [None]
